FAERS Safety Report 8440591-7 (Version None)
Quarter: 2012Q2

REPORT INFORMATION
  Report Type: 
  Country: None (occurrence: None)
  Receive Date: 20120615
  Receipt Date: 20120606
  Transmission Date: 20120825
  Serious: Yes (Hospitalization, Other)
  Sender: FDA-Public Use
  Company Number: US-BAYER-2011-057065

PATIENT
  Age: 37 Year
  Sex: Female
  Weight: 105.22 kg

DRUGS (12)
  1. YAZ [Suspect]
     Indication: PREMENSTRUAL SYNDROME
  2. CYMBALTA [Concomitant]
     Dosage: 30 MG 1 PILL DAILY, UNK
     Dates: start: 20091101, end: 20091201
  3. YAZ [Suspect]
     Indication: CONTRACEPTION
  4. HYDROCODONE [Concomitant]
     Dosage: 5-500
     Dates: start: 20091030, end: 20091119
  5. CYMBALTA [Concomitant]
     Indication: DEPRESSION
     Dosage: 30 MG, 1 PILL DAILY
     Dates: start: 20071214, end: 20100601
  6. AUGMENTIN '125' [Concomitant]
     Indication: BRONCHITIS
     Dosage: 875-125MG, BID
     Dates: start: 20091130, end: 20091207
  7. VICODIN [Concomitant]
     Dosage: 325 MG, 1-2 PRN
     Dates: start: 20091201
  8. YAZ [Suspect]
     Indication: MENSTRUATION IRREGULAR
     Dosage: UNK
     Route: 048
     Dates: start: 20080403, end: 20091203
  9. KAPIDEX [Concomitant]
     Dosage: 60 MG, QD
     Dates: start: 20091102, end: 20091117
  10. AUGMENTIN '125' [Concomitant]
     Indication: HAEMOPTYSIS
  11. AMOXICILLIN + CLAVULANATE POTASSIUM [Concomitant]
     Dosage: 875-125MG
     Dates: start: 20091130
  12. VICODIN [Concomitant]
     Indication: ANALGESIC THERAPY
     Dosage: 5/500
     Dates: start: 20091130

REACTIONS (15)
  - THROMBOSIS [None]
  - CHEST PAIN [None]
  - HAEMOPTYSIS [None]
  - DIARRHOEA [None]
  - BILIARY DYSKINESIA [None]
  - OVARIAN CYST [None]
  - GASTROENTERITIS [None]
  - ABDOMINAL PAIN [None]
  - PULMONARY EMBOLISM [None]
  - FEAR [None]
  - NAUSEA [None]
  - DYSPNOEA [None]
  - ABDOMINAL PAIN UPPER [None]
  - LIVER FUNCTION TEST ABNORMAL [None]
  - FATIGUE [None]
